FAERS Safety Report 5860126-2 (Version None)
Quarter: 2008Q3

REPORT INFORMATION
  Report Type: 
  Country: None (occurrence: None)
  Receive Date: 20080827
  Receipt Date: 20080815
  Transmission Date: 20090109
  Serious: Yes (Disabling, Other)
  Sender: FDA-Public Use
  Company Number: US-PFIZER INC-2008069223

PATIENT
  Sex: Female
  Weight: 108.9 kg

DRUGS (6)
  1. DEPO-PROVERA SUSPENSION/INJ [Suspect]
     Indication: OFF LABEL USE
     Route: 030
     Dates: start: 20070813, end: 20070813
  2. DEPO-PROVERA SUSPENSION/INJ [Suspect]
     Indication: MENSTRUATION IRREGULAR
  3. ZOLOFT [Concomitant]
  4. PROMETHAZINE [Concomitant]
  5. PERCOCET [Concomitant]
  6. MAXALT [Concomitant]

REACTIONS (11)
  - DISTURBANCE IN ATTENTION [None]
  - EMOTIONAL DISORDER [None]
  - FATIGUE [None]
  - FIBROMYALGIA [None]
  - HEADACHE [None]
  - MENORRHAGIA [None]
  - MIGRAINE [None]
  - MYOFASCIAL PAIN SYNDROME [None]
  - PAIN [None]
  - TEMPOROMANDIBULAR JOINT SYNDROME [None]
  - WEIGHT INCREASED [None]
